FAERS Safety Report 13742103 (Version 1)
Quarter: 2017Q3

REPORT INFORMATION
  Report Type: Spontaneous
  Country: AR (occurrence: AR)
  Receive Date: 20170711
  Receipt Date: 20170711
  Transmission Date: 20171127
  Serious: Yes (Other)
  Sender: FDA-Public Use
  Company Number: AR-AMGEN-ARGSP2017101428

PATIENT
  Age: 60 Year
  Sex: Female

DRUGS (1)
  1. ENBREL [Suspect]
     Active Substance: ETANERCEPT
     Indication: RHEUMATOID ARTHRITIS
     Dosage: 50 MG, QWK
     Route: 065
     Dates: start: 20070629

REACTIONS (4)
  - Chondropathy [Recovered/Resolved]
  - Polyp [Recovered/Resolved]
  - Uterine leiomyoma [Recovered/Resolved]
  - Incontinence [Unknown]

NARRATIVE: CASE EVENT DATE: 2010
